FAERS Safety Report 10469194 (Version 2)
Quarter: 2014Q4

REPORT INFORMATION
  Report Type: Spontaneous
  Country: JP (occurrence: None)
  Receive Date: 20140919
  Receipt Date: 20141028
  Transmission Date: 20150528
  Serious: Yes (Hospitalization, Other)
  Sender: FDA-Public Use
  Company Number: JP-017095

PATIENT
  Age: 61 Year
  Sex: Male

DRUGS (8)
  1. SENNA [Concomitant]
     Active Substance: SENNA LEAF\SENNOSIDES\SENNOSIDES A AND B
  2. BIOFERMIN [Concomitant]
     Active Substance: BACILLUS SUBTILIS\LACTOBACILLUS ACIDOPHILUS\STREPTOCOCCUS FAECAIS
  3. HERBAL EXTRACT [Concomitant]
  4. FLOMOX [Concomitant]
     Active Substance: CEFCAPENE PIVOXIL HYDROCHLORIDE HYDRATE
  5. URSO [Concomitant]
     Active Substance: URSODIOL
  6. GASCON [Concomitant]
     Active Substance: DIMETHICONE
  7. CASODEX [Concomitant]
     Active Substance: BICALUTAMIDE
  8. DEGARELIX (GONAX) 120 MG, 80 MG) [Suspect]
     Active Substance: DEGARELIX
     Indication: PROSTATE CANCER
     Route: 058
     Dates: start: 20130820, end: 20130820

REACTIONS (6)
  - Aspartate aminotransferase increased [None]
  - Blood alkaline phosphatase increased [None]
  - Liver disorder [None]
  - Pancreatitis [None]
  - Alanine aminotransferase increased [None]
  - Myelodysplastic syndrome [None]

NARRATIVE: CASE EVENT DATE: 20140128
